FAERS Safety Report 6404534-X (Version None)
Quarter: 2009Q4

REPORT INFORMATION
  Report Type: 
  Country: None (occurrence: None)
  Receive Date: 20091016
  Receipt Date: 20091005
  Transmission Date: 20100525
  Serious: Yes (Hospitalization)
  Sender: FDA-Public Use
  Company Number: PHHY2009DK42972

PATIENT
  Sex: Male

DRUGS (1)
  1. ZOLEDRONIC ACID [Suspect]
     Indication: METASTASES TO BONE

REACTIONS (7)
  - APHONIA [None]
  - BODY TEMPERATURE INCREASED [None]
  - CHILLS [None]
  - DIARRHOEA [None]
  - DIZZINESS [None]
  - MUSCULAR WEAKNESS [None]
  - VOMITING [None]
